FAERS Safety Report 7656549-1 (Version None)
Quarter: 2011Q3

REPORT INFORMATION
  Report Type: 
  Country: None (occurrence: None)
  Receive Date: 20110804
  Receipt Date: 20110113
  Transmission Date: 20111222
  Serious: No
  Sender: FDA-Public Use
  Company Number: US-BAUSCH-2011BL000304

PATIENT
  Sex: Female

DRUGS (2)
  1. ARTIFICIAL TEARS [Concomitant]
  2. OPCON-A [Suspect]
     Indication: EYE ALLERGY
     Route: 047
     Dates: start: 20101201, end: 20110110

REACTIONS (4)
  - OCULAR HYPERAEMIA [None]
  - EYE IRRITATION [None]
  - REACTION TO PRESERVATIVES [None]
  - CONDITION AGGRAVATED [None]
